FAERS Safety Report 6260017-1 (Version None)
Quarter: 2009Q3

REPORT INFORMATION
  Report Type: 
  Country: None (occurrence: None)
  Receive Date: 20090708
  Receipt Date: 20090701
  Transmission Date: 20100115
  Serious: Yes (Hospitalization, Other)
  Sender: FDA-Public Use
  Company Number: US-BAYER-200912814NA

PATIENT
  Age: 32 Year
  Sex: Female
  Weight: 88 kg

DRUGS (1)
  1. MIRENA [Suspect]
     Indication: CONTRACEPTION
     Dosage: CONTINUOUS
     Route: 015
     Dates: start: 20070801, end: 20090213

REACTIONS (9)
  - FLANK PAIN [None]
  - IUCD COMPLICATION [None]
  - IUD MIGRATION [None]
  - MUSCLE SPASMS [None]
  - OVARIAN CYST [None]
  - PAIN [None]
  - PELVIC PAIN [None]
  - PROCEDURAL DIZZINESS [None]
  - PROCEDURAL PAIN [None]
